FAERS Safety Report 6011796-X (Version None)
Quarter: 2008Q4

REPORT INFORMATION
  Report Type: 
  Country: None (occurrence: None)
  Receive Date: 20081218
  Receipt Date: 20080710
  Transmission Date: 20090506
  Serious: No
  Sender: FDA-Public Use
  Company Number: US-ABBOTT-08P-163-0462144-00

PATIENT
  Sex: Male
  Weight: 157.99 kg

DRUGS (7)
  1. MERIDIA [Suspect]
     Indication: WEIGHT CONTROL
     Route: 048
     Dates: start: 20080616
  2. PIOGLITAZONE [Concomitant]
     Indication: DIABETES MELLITUS
     Route: 048
     Dates: start: 20030101
  3. GLYBURIDE [Concomitant]
     Indication: HYPERTENSION
     Route: 048
     Dates: start: 20050101
  4. GLYBURIDE [Concomitant]
  5. CAPTOPRIL [Concomitant]
     Indication: RENAL DISORDER
     Route: 048
  6. LORATADINE [Concomitant]
     Indication: RENAL DISORDER
     Dosage: 10/12.5MG
     Route: 048
  7. VYTORIN [Concomitant]
     Indication: BLOOD CHOLESTEROL
     Dosage: 10-40MG ONCE A DAY
     Route: 048
     Dates: start: 20060101

REACTIONS (4)
  - IMPAIRED DRIVING ABILITY [None]
  - IMPAIRED WORK ABILITY [None]
  - SOMNOLENCE [None]
  - SUDDEN ONSET OF SLEEP [None]
